FAERS Safety Report 6521174-2 (Version None)
Quarter: 2009Q4

REPORT INFORMATION
  Report Type: 
  Country: None (occurrence: None)
  Receive Date: 20091222
  Receipt Date: 20091209
  Transmission Date: 20100525
  Serious: Yes (Disabling)
  Sender: FDA-Public Use
  Company Number: 234582K09USA

PATIENT
  Age: 55 Year
  Sex: Female

DRUGS (4)
  1. REBIF [Suspect]
     Indication: MULTIPLE SCLEROSIS
     Dosage: 44 MCG, 3 IN 1 WEEKS, SUBCUTANEOUS
     Route: 058
     Dates: start: 20080519, end: 20091001
  2. IBUPROFEN (ISUPROFEN) [Concomitant]
  3. LISINOPRIL [Concomitant]
  4. UNSPECIFIED HIGH CHOLESTEROL MEDICATION (ALL OTHER' THERAPEUTIC PRODUC [Concomitant]

REACTIONS (1)
  - BLINDNESS [None]
